FAERS Safety Report 5896985-7 (Version None)
Quarter: 2008Q3

REPORT INFORMATION
  Report Type: 
  Country: None (occurrence: None)
  Receive Date: 20080924
  Receipt Date: 20080208
  Transmission Date: 20090109
  Serious: Yes (Other)
  Sender: FDA-Public Use
  Company Number: US-ASTRAZENECA-2008UW02799

PATIENT
  Sex: Male

DRUGS (2)
  1. SEROQUEL [Suspect]
     Indication: AGITATION
     Route: 048
  2. SERZONE [Concomitant]

REACTIONS (3)
  - ANOREXIA [None]
  - CEREBELLAR ATAXIA [None]
  - DYSPHAGIA [None]
